FAERS Safety Report 8616419-9 (Version None)
Quarter: 2012Q3

REPORT INFORMATION
  Report Type: 
  Country: None (occurrence: None)
  Receive Date: 20120823
  Receipt Date: 20120816
  Transmission Date: 20120928
  Serious: Yes (Life-Threatening)
  Sender: FDA-Public Use
  Company Number: PHHY2012JP071756

PATIENT
  Age: 59 Year
  Sex: Male

DRUGS (3)
  1. ACETYLSALICYLIC ACID SRT [Suspect]
     Indication: ANTIPLATELET THERAPY
     Dosage: 200 MG, UNK
     Route: 048
  2. CLOPIDEGREL [Suspect]
     Indication: ANTIPLATELET THERAPY
     Dosage: 75 MG, UNK
     Route: 048
  3. ARGATROBAN [Concomitant]
     Route: 042

REACTIONS (1)
  - GASTROINTESTINAL HAEMORRHAGE [None]
